FAERS Safety Report 25353260 (Version 1)
Quarter: 2025Q2

REPORT INFORMATION
  Report Type: Spontaneous
  Country: US (occurrence: US)
  Receive Date: 20250523
  Receipt Date: 20250523
  Transmission Date: 20250716
  Serious: Yes (Other)
  Sender: DR REDDYS
  Company Number: US-DRL-USA-USA/2025/05/007528

PATIENT
  Age: 70 Year
  Sex: Male

DRUGS (7)
  1. DOXORUBICIN [Suspect]
     Active Substance: DOXORUBICIN
     Indication: Cutaneous T-cell lymphoma
  2. CYCLOPHOSPHAMIDE [Suspect]
     Active Substance: CYCLOPHOSPHAMIDE
     Indication: Cutaneous T-cell lymphoma
  3. GEMCITABINE [Suspect]
     Active Substance: GEMCITABINE
     Indication: Cutaneous T-cell lymphoma
  4. VINCRISTINE [Concomitant]
     Active Substance: VINCRISTINE
     Indication: Cutaneous T-cell lymphoma
  5. PREDNISONE [Concomitant]
     Active Substance: PREDNISONE
     Indication: Cutaneous T-cell lymphoma
  6. OXALIPLATIN [Concomitant]
     Active Substance: OXALIPLATIN
     Indication: Cutaneous T-cell lymphoma
  7. BRENTUXIMAB VEDOTIN [Concomitant]
     Active Substance: BRENTUXIMAB VEDOTIN
     Indication: Cutaneous T-cell lymphoma

REACTIONS (1)
  - Drug ineffective for unapproved indication [Unknown]
